FAERS Safety Report 6398353-0 (Version None)
Quarter: 2009Q4

REPORT INFORMATION
  Report Type: 
  Country: None (occurrence: None)
  Receive Date: 20091013
  Receipt Date: 20091005
  Transmission Date: 20100525
  Serious: Yes (Other)
  Sender: FDA-Public Use
  Company Number: US-PFIZER INC-2005048168

PATIENT
  Sex: Female
  Weight: 57 kg

DRUGS (17)
  1. PROVERA [Suspect]
     Indication: HORMONE REPLACEMENT THERAPY
     Dosage: 10 MG, UNK
     Route: 048
     Dates: start: 19930828, end: 19980101
  2. PREMARIN [Suspect]
     Indication: HORMONE REPLACEMENT THERAPY
     Route: 065
     Dates: start: 19930101, end: 19990101
  3. PREMPRO [Suspect]
     Indication: HORMONE REPLACEMENT THERAPY
     Dosage: UNK
     Dates: start: 19930101, end: 19990101
  4. PREMPHASE 14/14 [Suspect]
     Indication: HORMONE REPLACEMENT THERAPY
     Dosage: 0.625; 5MG
     Route: 065
     Dates: start: 19980827, end: 19990101
  5. ESTRACE [Suspect]
     Indication: HORMONE REPLACEMENT THERAPY
     Dosage: 1 MG, UNK
     Route: 065
     Dates: start: 19930828, end: 19980101
  6. ESTRACE [Suspect]
     Dosage: 0.01%; 42.5 GM
     Route: 067
     Dates: start: 19941011, end: 19990101
  7. PRILOSEC [Concomitant]
     Indication: GASTROOESOPHAGEAL REFLUX DISEASE
     Dosage: UNK
     Dates: start: 19970101, end: 20030101
  8. NORTRIPTYLINE [Concomitant]
     Indication: FIBROMYALGIA
     Dosage: UNK
     Dates: start: 19970101, end: 20000101
  9. PROPOXYPHENE HCL CAP [Concomitant]
     Indication: PAIN
     Dosage: UNK
     Dates: start: 19930101
  10. HYDROCODONE [Concomitant]
     Indication: PAIN
     Dosage: UNK
     Dates: start: 19970101
  11. WELLBUTRIN SR [Concomitant]
     Indication: FIBROMYALGIA
     Dosage: UNK
     Dates: start: 19970101, end: 20000101
  12. ULTRAM [Concomitant]
     Indication: FIBROMYALGIA
     Dosage: UNK
     Dates: start: 19960101, end: 20000101
  13. ZOLOFT [Concomitant]
     Indication: FIBROMYALGIA
     Dosage: UNK
     Dates: start: 19950101
  14. ZOLOFT [Concomitant]
     Indication: HOT FLUSH
  15. EFFEXOR [Concomitant]
     Indication: FIBROMYALGIA
     Dosage: UNK
     Dates: start: 19970101, end: 20030101
  16. EFFEXOR [Concomitant]
     Indication: BACK PAIN
  17. MAG-OX [Concomitant]
     Indication: FIBROMYALGIA
     Dosage: UNK
     Dates: start: 19970101

REACTIONS (1)
  - BREAST CANCER FEMALE [None]
